FAERS Safety Report 7950772-4 (Version None)
Quarter: 2011Q4

REPORT INFORMATION
  Report Type: 
  Country: None (occurrence: None)
  Receive Date: 20111125
  Receipt Date: 20111118
  Transmission Date: 20120403
  Serious: Yes (Hospitalization, Disabling)
  Sender: FDA-Public Use
  Company Number: 2011SP025679

PATIENT
  Age: 31 Year
  Sex: Female
  Weight: 61.2356 kg

DRUGS (1)
  1. NUVARING [Suspect]
     Indication: CONTRACEPTION
     Dates: start: 20080926, end: 20090605

REACTIONS (11)
  - INSOMNIA [None]
  - BRONCHITIS [None]
  - ABDOMINAL PAIN [None]
  - LUNG DISORDER [None]
  - DYSPNOEA [None]
  - MULTIPLE INJURIES [None]
  - PULMONARY EMBOLISM [None]
  - OVARIAN CYST [None]
  - IMPAIRED WORK ABILITY [None]
  - CHEST PAIN [None]
  - ANXIETY [None]
